FAERS Safety Report 23970044 (Version 1)
Quarter: 2024Q2

REPORT INFORMATION
  Report Type: Spontaneous
  Country: CN (occurrence: CN)
  Receive Date: 20240613
  Receipt Date: 20240613
  Transmission Date: 20240716
  Serious: Yes (Life-Threatening, Hospitalization)
  Sender: FDA-Public Use
  Company Number: CN-ABBVIE-5799007

PATIENT
  Sex: Male
  Weight: 61 kg

DRUGS (5)
  1. VENETOCLAX [Suspect]
     Active Substance: VENETOCLAX
     Indication: Chemotherapy
     Dosage: QN: EVERY NIGHT/ DURATION TEXT: D2
     Route: 048
     Dates: start: 20240512, end: 20240512
  2. VENETOCLAX [Suspect]
     Active Substance: VENETOCLAX
     Indication: Chemotherapy
     Dosage: QN: EVERY NIGHT/ DURATION TEXT: D1
     Route: 048
     Dates: start: 20240511, end: 20240511
  3. VENETOCLAX [Suspect]
     Active Substance: VENETOCLAX
     Indication: Chemotherapy
     Dosage: D4-14/21
     Route: 048
     Dates: start: 20240514, end: 20240525
  4. AZACITIDINE [Suspect]
     Active Substance: AZACITIDINE
     Indication: Chemotherapy
     Dosage: DURATION TEXT: D1
     Route: 058
     Dates: start: 20240511, end: 20240511
  5. AZACITIDINE [Suspect]
     Active Substance: AZACITIDINE
     Indication: Chemotherapy
     Dosage: DURATION TEXT: D2-D7
     Route: 058
     Dates: start: 20240512, end: 20240517

REACTIONS (3)
  - Myelosuppression [Recovering/Resolving]
  - Breath sounds abnormal [Unknown]
  - Anaemia [Unknown]

NARRATIVE: CASE EVENT DATE: 20240101
